FAERS Safety Report 8423463-3 (Version None)
Quarter: 2012Q2

REPORT INFORMATION
  Report Type: 
  Country: None (occurrence: None)
  Receive Date: 20120608
  Receipt Date: 20120531
  Transmission Date: 20120825
  Serious: No
  Sender: FDA-Public Use
  Company Number: US-ASTRAZENECA-2012SE36268

PATIENT
  Age: 81 Year
  Sex: Female
  Weight: 66.7 kg

DRUGS (1)
  1. VIMOVO [Suspect]
     Route: 048

REACTIONS (3)
  - DIZZINESS [None]
  - INSOMNIA [None]
  - TINNITUS [None]
